FAERS Safety Report 25069807 (Version 1)
Quarter: 2025Q1

REPORT INFORMATION
  Report Type: Report from Study
  Country: CL (occurrence: CL)
  Receive Date: 20250312
  Receipt Date: 20250312
  Transmission Date: 20250408
  Serious: Yes (Other)
  Sender: SANDOZ
  Company Number: CL-SANDOZ-SDZ2025CL015324

PATIENT
  Sex: Male
  Weight: 73 kg

DRUGS (1)
  1. OMNITROPE [Suspect]
     Active Substance: SOMATROPIN
     Indication: Product used for unknown indication
     Route: 058
     Dates: start: 20230309, end: 2024

REACTIONS (1)
  - Joint dislocation [Unknown]
